FAERS Safety Report 7982269-X (Version None)
Quarter: 2011Q4

REPORT INFORMATION
  Report Type: 
  Country: None (occurrence: None)
  Receive Date: 20111215
  Receipt Date: 20111215
  Transmission Date: 20120403
  Serious: Yes (Other)
  Sender: FDA-Public Use
  Company Number: None

PATIENT
  Sex: Female
  Weight: 77.1 kg

DRUGS (3)
  1. CARBAMAZEPINE [Suspect]
     Dosage: 400 MG, 600 MG
     Route: 048
  2. CARBAMAZEPINE [Concomitant]
  3. GABAPENTIN [Concomitant]
     Route: 048

REACTIONS (5)
  - CONVULSION [None]
  - ASTHENIA [None]
  - HYPONATRAEMIA [None]
  - PRODUCT SUBSTITUTION ISSUE [None]
  - INAPPROPRIATE ANTIDIURETIC HORMONE SECRETION [None]
